FAERS Safety Report 7150693-3 (Version None)
Quarter: 2010Q4

REPORT INFORMATION
  Report Type: 
  Country: None (occurrence: None)
  Receive Date: 20101207
  Receipt Date: 20101207
  Transmission Date: 20110411
  Serious: Yes (Other)
  Sender: FDA-Public Use
  Company Number: None

PATIENT
  Age: 12 Year
  Sex: Male
  Weight: 35.3806 kg

DRUGS (2)
  1. IMITREX [Suspect]
     Indication: MIGRAINE
     Dosage: 1 ONSET HA
     Dates: start: 20100923
  2. ZOMIG [Suspect]
     Indication: MIGRAINE
     Dosage: 1 ONSET HA
     Dates: start: 20100923

REACTIONS (1)
  - DRUG INEFFECTIVE [None]
